FAERS Safety Report 20283141 (Version 1)
Quarter: 2022Q1

REPORT INFORMATION
  Report Type: Spontaneous
  Country: US (occurrence: US)
  Receive Date: 20220103
  Receipt Date: 20220103
  Transmission Date: 20220423
  Serious: No
  Sender: FDA-Public Use
  Company Number: US-TEVA-2021-US-1987032

PATIENT
  Age: 49 Year
  Sex: Female

DRUGS (1)
  1. SPRINTEC [Suspect]
     Active Substance: ETHINYL ESTRADIOL\NORGESTIMATE
     Indication: Vaginal haemorrhage
     Dosage: 0.25-0.035 MG-MG
     Route: 065
     Dates: start: 20211117, end: 20211206

REACTIONS (3)
  - Vaginal haemorrhage [Recovered/Resolved]
  - Vaginal haematoma [Recovered/Resolved with Sequelae]
  - Product use in unapproved indication [Unknown]

NARRATIVE: CASE EVENT DATE: 20211101
